FAERS Safety Report 6115143-4 (Version None)
Quarter: 2009Q1

REPORT INFORMATION
  Report Type: 
  Country: None (occurrence: None)
  Receive Date: 20090313
  Receipt Date: 20090304
  Transmission Date: 20090719
  Serious: Yes (Hospitalization)
  Sender: FDA-Public Use
  Company Number: SK-PFIZER INC-2006006665

PATIENT

DRUGS (4)
  1. SUNITINIB MALATE [Suspect]
     Indication: RENAL CELL CARCINOMA
     Dosage: 50 MG, 1X/DAY
     Route: 048
     Dates: start: 20051212, end: 20051227
  2. TRANSTEC TTS [Concomitant]
     Route: 062
     Dates: start: 20051206
  3. WARFARIN SODIUM [Concomitant]
     Route: 048
     Dates: start: 20051130
  4. CLODRONIC ACID [Concomitant]
     Route: 048
     Dates: start: 20051029

REACTIONS (2)
  - ARRHYTHMIA [None]
  - LOSS OF CONSCIOUSNESS [None]
